FAERS Safety Report 10080094 (Version 1)
Quarter: 2014Q2

REPORT INFORMATION
  Report Type: Spontaneous
  Country: DE (occurrence: DE)
  Receive Date: 20140415
  Receipt Date: 20140415
  Transmission Date: 20141212
  Serious: Yes (Congenital Anomaly, Other)
  Sender: FDA-Public Use
  Company Number: DE-MYLANLABS-2014S1007677

PATIENT
  Age: 1 Day
  Sex: Female
  Weight: 4.02 kg

DRUGS (4)
  1. QUETIAPINE [Suspect]
     Indication: PSYCHOTIC DISORDER
     Dosage: 300 [MG/D ]
     Route: 064
     Dates: start: 20130113, end: 20131015
  2. QUILONORM /00033702/ [Suspect]
     Indication: PSYCHOTIC DISORDER
     Dosage: 900 [MG/D (4X225) ]
     Route: 064
     Dates: start: 20130113, end: 20131015
  3. THIAMAZOLE [Suspect]
     Indication: HYPERTHYROIDISM
     Dosage: 20 [MG/D (BIS 5) ]/ 20MG/D UNTIL 25.2.13, THEN 5MG/D UNTIL 25.4.13
     Route: 064
     Dates: start: 20130113, end: 20130425
  4. FOLIC ACID [Concomitant]
     Indication: PROPHYLAXIS OF NEURAL TUBE DEFECT
     Route: 064

REACTIONS (4)
  - Hypoaldosteronism [Not Recovered/Not Resolved]
  - Kidney duplex [Not Recovered/Not Resolved]
  - Large for dates baby [Unknown]
  - Exposure during pregnancy [Recovered/Resolved]
